FAERS Safety Report 19091618 (Version 1)
Quarter: 2021Q2

REPORT INFORMATION
  Report Type: Spontaneous
  Country: US (occurrence: US)
  Receive Date: 20210403
  Receipt Date: 20210403
  Transmission Date: 20210717
  Serious: Yes (Hospitalization)
  Sender: FDA-Public Use
  Company Number: None

PATIENT
  Age: 17 Year
  Sex: Female
  Weight: 47.5 kg

DRUGS (4)
  1. NEXAVAR [Suspect]
     Active Substance: SORAFENIB
     Dates: end: 20210326
  2. DOXORUBICIN HYDROCHLORIDE. [Suspect]
     Active Substance: DOXORUBICIN HYDROCHLORIDE
     Dates: end: 20210324
  3. CISPLATIN. [Suspect]
     Active Substance: CISPLATIN
     Dates: end: 20210323
  4. ZINECARD [Suspect]
     Active Substance: DEXRAZOXANE HYDROCHLORIDE
     Dates: end: 20210324

REACTIONS (9)
  - Neutrophil count decreased [None]
  - Abdominal pain [None]
  - Oropharyngeal pain [None]
  - Pyrexia [None]
  - Vomiting [None]
  - Swelling [None]
  - Fatigue [None]
  - Tachycardia [None]
  - Human rhinovirus test positive [None]

NARRATIVE: CASE EVENT DATE: 20210331
